FAERS Safety Report 13431115 (Version 1)
Quarter: 2017Q2

REPORT INFORMATION
  Report Type: Spontaneous
  Country: US (occurrence: US)
  Receive Date: 20170412
  Receipt Date: 20170412
  Transmission Date: 20170830
  Serious: Yes (Other)
  Sender: FDA-Public Use
  Company Number: US-TAKEDA-2017MPI001565

PATIENT
  Sex: Female
  Weight: 77 kg

DRUGS (1)
  1. VELCADE [Suspect]
     Active Substance: BORTEZOMIB
     Indication: PLASMA CELL MYELOMA
     Dosage: UNK
     Route: 058
     Dates: start: 2014, end: 2016

REACTIONS (5)
  - Rash generalised [Recovered/Resolved]
  - Neuropathy peripheral [Unknown]
  - Fatigue [Not Recovered/Not Resolved]
  - Bone pain [Not Recovered/Not Resolved]
  - Myalgia [Not Recovered/Not Resolved]
